FAERS Safety Report 14438248 (Version 1)
Quarter: 2018Q1

REPORT INFORMATION
  Report Type: Spontaneous
  Country: US (occurrence: US)
  Receive Date: 20180125
  Receipt Date: 20180125
  Transmission Date: 20180509
  Serious: No
  Sender: FDA-Public Use
  Company Number: US-PFIZER INC-2017521068

PATIENT
  Age: 39 Year
  Sex: Male

DRUGS (1)
  1. SUTENT [Suspect]
     Active Substance: SUNITINIB MALATE
     Indication: ALVEOLAR SOFT PART SARCOMA
     Dosage: 37.5 MG, DAILY
     Route: 048
     Dates: start: 20171216

REACTIONS (3)
  - Product use in unapproved indication [Unknown]
  - Abdominal pain [Unknown]
  - Fatigue [Unknown]

NARRATIVE: CASE EVENT DATE: 20171216
